FAERS Safety Report 9056205 (Version 1)
Quarter: 2013Q1

REPORT INFORMATION
  Report Type: Spontaneous
  Country: DE (occurrence: DE)
  Receive Date: 20130205
  Receipt Date: 20130205
  Transmission Date: 20140127
  Serious: Yes (Death)
  Sender: FDA-Public Use
  Company Number: DE-CELGENEUS-062-50794-13014625

PATIENT
  Sex: Male
  Weight: 83 kg

DRUGS (1)
  1. VIDAZA [Suspect]
     Indication: CHRONIC MYELOMONOCYTIC LEUKAEMIA
     Dosage: 100 MG
     Route: 065
     Dates: end: 20120612

REACTIONS (5)
  - Dyspnoea [Fatal]
  - Nausea [Fatal]
  - Asthenia [Fatal]
  - Diarrhoea [Fatal]
  - Pneumonia [Fatal]
